FAERS Safety Report 12118054 (Version 2)
Quarter: 2016Q1

REPORT INFORMATION
  Report Type: Spontaneous
  Country: BR (occurrence: BR)
  Receive Date: 20160226
  Receipt Date: 20160322
  Transmission Date: 20160526
  Serious: Yes (Hospitalization, Other)
  Sender: FDA-Public Use
  Company Number: BR-ROCHE-1715735

PATIENT
  Age: 35 Year
  Sex: Male
  Weight: 60 kg

DRUGS (9)
  1. VALCYTE [Suspect]
     Active Substance: VALGANCICLOVIR HYDROCHLORIDE
     Dosage: AT 09:00 AM AND 09:00 PM DURING 28 DAYS
     Route: 042
  2. CARVEDILOL. [Concomitant]
     Active Substance: CARVEDILOL
     Indication: CARDIAC DISORDER
     Dosage: START DATE: 3 YEARS PRIOR TO THIS REPORT
     Route: 065
  3. AMLODIPINE [Concomitant]
     Active Substance: AMLODIPINE BESYLATE
     Indication: HYPERTENSION
     Dosage: START DATE: 3 YEARS PRIOR TO THIS REPORT
     Route: 065
  4. MYCOPHENOLATE [Concomitant]
     Active Substance: MYCOPHENOLIC ACID
     Indication: IMMUNOSUPPRESSION
     Dosage: SINCE KIDNEY TRANSPLANT
     Route: 065
  5. VALCYTE [Suspect]
     Active Substance: VALGANCICLOVIR HYDROCHLORIDE
     Indication: CYTOMEGALOVIRUS INFECTION
     Route: 065
     Dates: start: 2012
  6. DEFLAZACORT [Concomitant]
     Active Substance: DEFLAZACORT
     Dosage: CORTISONE FOR KIDNEY.?START DATE: 4 YEARS PRIOR TO THIS REPORT
     Route: 065
  7. FLUOXETINE [Concomitant]
     Active Substance: FLUOXETINE HYDROCHLORIDE
     Indication: DEPRESSION
     Dosage: START DATE: TREATMENT STARTED DURING HOSPITALIZATION, BUT PATIENT PRESENTED DEPRESSION SYMPTOMS FOR
     Route: 065
  8. MYFORTIC [Concomitant]
     Active Substance: MYCOPHENOLATE SODIUM
     Indication: IMMUNOSUPPRESSION
     Dosage: SINCE KIDNEY TRANSPLANT
     Route: 065
  9. ACICLOVIR [Concomitant]
     Active Substance: ACYCLOVIR
     Indication: CYTOMEGALOVIRUS INFECTION
     Route: 065
     Dates: start: 201512

REACTIONS (5)
  - Thrombosis [Unknown]
  - Visual impairment [Unknown]
  - Poor venous access [Not Recovered/Not Resolved]
  - Cerebrovascular accident [Unknown]
  - Optic nerve injury [Unknown]

NARRATIVE: CASE EVENT DATE: 2015
